FAERS Safety Report 6731682-7 (Version None)
Quarter: 2010Q2

REPORT INFORMATION
  Report Type: 
  Country: None (occurrence: None)
  Receive Date: 20100519
  Receipt Date: 20100512
  Transmission Date: 20101027
  Serious: Yes (Death, Life-Threatening, Hospitalization, Other)
  Sender: FDA-Public Use
  Company Number: JP-BAYER-200913393BYL

PATIENT
  Age: 62 Year
  Sex: Male
  Weight: 68 kg

DRUGS (9)
  1. NEXAVAR [Suspect]
     Indication: HEPATIC NEOPLASM MALIGNANT
     Dosage: TOTAL DAILY DOSE: 800 MG  UNIT DOSE: 200 MG
     Route: 048
     Dates: start: 20090706, end: 20090826
  2. NOVOLIN R [Concomitant]
     Dosage: SINCE BEFORE NEXAVAR ADMINISTRATION
     Route: 057
  3. BIOFERMIN [Concomitant]
     Dosage: SINCE BEFORE NEXAVAR ADMINISTRATION
     Route: 048
  4. MAGNESIUM OXIDE [Concomitant]
     Dosage: SINCE BEFORE NEXAVAR ADMINISTRATION
     Route: 048
  5. CELECOX [Concomitant]
     Dosage: SINCE BEFORE NEXAVAR ADMINISTRATION
     Route: 048
  6. MUCOSTA [Concomitant]
     Dosage: SINCE BEFORE NEXAVAR ADMINISTRATION
     Route: 048
  7. KERATINAMIN [Concomitant]
     Dosage: SINCE BEFORE NEXAVAR ADMINISTRATION
     Route: 061
     Dates: end: 20090730
  8. FASTIC [Concomitant]
     Route: 048
  9. ASTAT:OINTMENT [Concomitant]
     Route: 061
     Dates: start: 20090715

REACTIONS (9)
  - ALTERED STATE OF CONSCIOUSNESS [None]
  - BACK PAIN [None]
  - BLOOD ALBUMIN DECREASED [None]
  - CONSTIPATION [None]
  - HEPATIC NEOPLASM MALIGNANT [None]
  - MELAENA [None]
  - PYREXIA [None]
  - RECTAL ULCER [None]
  - SKIN EXFOLIATION [None]
